FAERS Safety Report 11073543 (Version 2)
Quarter: 2015Q3

REPORT INFORMATION
  Report Type: Spontaneous
  Country: US (occurrence: US)
  Receive Date: 20150428
  Receipt Date: 20150805
  Transmission Date: 20151125
  Serious: Yes (Other)
  Sender: FDA-Public Use
  Company Number: US-CELGENEUS-USA-2015045169

PATIENT
  Age: 72 Year
  Sex: Male

DRUGS (3)
  1. POMALYST [Suspect]
     Active Substance: POMALIDOMIDE
     Indication: MYELOFIBROSIS
     Dosage: 2 MILLIGRAM
     Route: 048
     Dates: start: 201411, end: 20150421
  2. POMALYST [Suspect]
     Active Substance: POMALIDOMIDE
     Indication: MALIGNANT NEOPLASM OF CORNEA
  3. POMALYST [Suspect]
     Active Substance: POMALIDOMIDE
     Indication: OFF LABEL USE

REACTIONS (1)
  - No therapeutic response [Not Recovered/Not Resolved]

NARRATIVE: CASE EVENT DATE: 20150421
